FAERS Safety Report 8696787 (Version 3)
Quarter: 2013Q3

REPORT INFORMATION
  Report Type: Report from Study
  Country: US (occurrence: US)
  Receive Date: 20120801
  Receipt Date: 20130816
  Transmission Date: 20140515
  Serious: Yes (Hospitalization)
  Sender: FDA-Public Use
  Company Number: US-ROCHE-1088308

PATIENT
  Age: 49 Year
  Sex: Female
  Weight: 106.3 kg

DRUGS (20)
  1. VEMURAFENIB [Suspect]
     Indication: MALIGNANT MELANOMA
     Route: 048
     Dates: start: 20120416, end: 20130514
  2. BENADRYL [Concomitant]
     Route: 048
     Dates: start: 20120426
  3. OMEPRAZOLE [Concomitant]
     Route: 048
     Dates: start: 20120426
  4. IBUPROFEN [Concomitant]
     Route: 048
     Dates: start: 20120524, end: 20120524
  5. IBUPROFEN [Concomitant]
     Route: 048
     Dates: start: 20120525, end: 20120526
  6. IBUPROFEN [Concomitant]
     Dosage: SINGLE DOSE
     Route: 048
     Dates: start: 20120527, end: 20120527
  7. IBUPROFEN [Concomitant]
     Route: 048
     Dates: start: 20120621, end: 20120704
  8. IBUPROFEN [Concomitant]
     Route: 048
     Dates: start: 20120908
  9. MORPHINE [Concomitant]
     Route: 048
     Dates: start: 20120601, end: 20120602
  10. BACTRIM [Concomitant]
     Route: 048
     Dates: start: 20120522, end: 20120526
  11. ROCEPHIN [Concomitant]
     Dosage: SINGLE DOSE
     Route: 042
     Dates: start: 20120527, end: 20120527
  12. METRONIDAZOLE [Concomitant]
     Dosage: SINGLE DOSE
     Route: 042
     Dates: start: 20120527, end: 20120527
  13. LIDOCAINE/EPINEPHRINE [Concomitant]
     Dosage: 1:1000,000 ML ; SINGLE DOSE
     Route: 030
     Dates: start: 20120515, end: 20120515
  14. KETOCONAZOLE [Concomitant]
     Route: 061
     Dates: start: 20120515
  15. HYDROCORTISONE [Concomitant]
     Route: 065
     Dates: start: 20120515
  16. LISINOPRIL [Concomitant]
     Route: 048
     Dates: start: 20121204, end: 20130430
  17. PREDNISONE [Concomitant]
     Route: 048
     Dates: start: 20121107
  18. PREDNISONE [Concomitant]
     Route: 048
     Dates: start: 20120814, end: 20121106
  19. LOSARTAN [Concomitant]
     Route: 048
     Dates: start: 20130430
  20. DEXAMETHASONE [Concomitant]
     Route: 048
     Dates: start: 20130508, end: 20130618

REACTIONS (1)
  - Ocular ischaemic syndrome [Recovered/Resolved]
